FAERS Safety Report 20033438 (Version 1)
Quarter: 2021Q4

REPORT INFORMATION
  Report Type: Spontaneous
  Country: CN (occurrence: None)
  Receive Date: 20211104
  Receipt Date: 20211104
  Transmission Date: 20220304
  Serious: Yes (Hospitalization)
  Sender: FDA-Public Use
  Company Number: 2021A789430

PATIENT
  Age: 17167 Day
  Sex: Male

DRUGS (2)
  1. DAPAGLIFLOZIN [Suspect]
     Active Substance: DAPAGLIFLOZIN
     Indication: Diabetes mellitus
     Route: 048
     Dates: start: 20211012, end: 20211016
  2. PIOGLITAZONE METFORMIN [Concomitant]
     Indication: Diabetes mellitus
     Route: 048
     Dates: start: 20211012, end: 20211016

REACTIONS (2)
  - Diabetic ketosis [Unknown]
  - Urticaria [Recovering/Resolving]

NARRATIVE: CASE EVENT DATE: 20211016
